FAERS Safety Report 4815598-9 (Version None)
Quarter: 2005Q4

REPORT INFORMATION
  Report Type: 
  Country: None (occurrence: None)
  Receive Date: 20051027
  Receipt Date: 20051014
  Transmission Date: 20060501
  Serious: Yes (Other)
  Sender: FDA-Public Use
  Company Number: DEWYE060217OCT05

PATIENT
  Age: 76 Year
  Sex: Male

DRUGS (2)
  1. VENLAFAXINE HCL [Suspect]
     Indication: DEPRESSION
     Dosage: 150 MG 2X PER 1 DAY ORAL
     Route: 048
  2. MEMANTINE (MEMANTINE, , 0) [Suspect]
     Dosage: ORAL
     Route: 048

REACTIONS (3)
  - COORDINATION ABNORMAL [None]
  - DRUG ABUSER [None]
  - MUSCULAR WEAKNESS [None]
